FAERS Safety Report 10377732 (Version 2)
Quarter: 2014Q3

REPORT INFORMATION
  Report Type: Report from Study
  Country: BR (occurrence: BR)
  Receive Date: 20140812
  Receipt Date: 20140812
  Transmission Date: 20150326
  Serious: Yes (Other)
  Sender: FDA-Public Use
  Company Number: PHHY2014BR004105

PATIENT
  Sex: Female
  Weight: 48 kg

DRUGS (6)
  1. HYDROCHLOROTHIAZIDE. [Concomitant]
     Active Substance: HYDROCHLOROTHIAZIDE
     Indication: DIABETES MELLITUS
     Dosage: 25 MG, UNK
     Dates: start: 2003
  2. METHOTREXATE [Concomitant]
     Active Substance: METHOTREXATE
     Dosage: 5 MG, UNK
  3. GLIBENCLAMIDE [Concomitant]
     Active Substance: GLYBURIDE
     Indication: DIABETES MELLITUS
     Dosage: 5 MG, UNK
     Dates: start: 1998
  4. FORASEQ [Suspect]
     Active Substance: BUDESONIDE\FORMOTEROL FUMARATE
     Indication: OFF LABEL USE
  5. METHOTREXATE [Concomitant]
     Active Substance: METHOTREXATE
     Indication: SKIN EXFOLIATION
     Dosage: 2 MG, UNK
     Dates: start: 2009
  6. FORASEQ [Suspect]
     Active Substance: BUDESONIDE\FORMOTEROL FUMARATE
     Indication: EMPHYSEMA
     Dosage: UNK UKN, BID (ONCE IN MORNING AND ONCE IN NIGHT)
     Route: 048
     Dates: start: 2003

REACTIONS (11)
  - Drug dependence [Unknown]
  - Dyspnoea [Not Recovered/Not Resolved]
  - Lung disorder [Unknown]
  - Spinal cord disorder [Unknown]
  - Joint injury [Not Recovered/Not Resolved]
  - Hypertension [Unknown]
  - Vertigo [Not Recovered/Not Resolved]
  - Fall [Not Recovered/Not Resolved]
  - Nervousness [Unknown]
  - Urinary tract disorder [Not Recovered/Not Resolved]
  - Urinary retention [Unknown]
